FAERS Safety Report 6373174-3 (Version None)
Quarter: 2009Q3

REPORT INFORMATION
  Report Type: 
  Country: None (occurrence: None)
  Receive Date: 20090924
  Receipt Date: 20090109
  Transmission Date: 20100115
  Serious: No
  Sender: FDA-Public Use
  Company Number: US-ASTRAZENECA-2009UW00869

PATIENT
  Age: 80 Year

DRUGS (1)
  1. SEROQUEL [Suspect]
     Dosage: 50-100 MG
     Route: 048

REACTIONS (2)
  - ABNORMAL BEHAVIOUR [None]
  - INSOMNIA [None]
